FAERS Safety Report 4475827-0 (Version None)
Quarter: 2004Q3

REPORT INFORMATION
  Report Type: 
  Country: None (occurrence: None)
  Receive Date: 20040923
  Receipt Date: 20040708
  Transmission Date: 20050211
  Serious: No
  Sender: FDA-Public Use
  Company Number: USA040772165

PATIENT
  Age: 86 Year
  Sex: Female

DRUGS (2)
  1. FORTEO [Suspect]
     Dosage: 20 UG
  2. FOSAMAX [Concomitant]

REACTIONS (2)
  - CHEST DISCOMFORT [None]
  - RESPIRATORY TRACT CONGESTION [None]
